FAERS Safety Report 25670906 (Version 1)
Quarter: 2025Q3

REPORT INFORMATION
  Report Type: Spontaneous
  Country: US (occurrence: None)
  Receive Date: 20250811
  Receipt Date: 20250811
  Transmission Date: 20251021
  Serious: Yes (Hospitalization)
  Sender: FDA-CTU
  Company Number: None

PATIENT
  Age: 45 Year
  Sex: Female

DRUGS (3)
  1. OPSUMIT [Suspect]
     Active Substance: MACITENTAN
     Indication: Pulmonary arterial hypertension
     Dosage: FREQUENCY : DAILY;?
     Route: 048
     Dates: start: 20201019
  2. REMODULIN [Suspect]
     Active Substance: TREPROSTINIL
  3. STERILE DILUENT FOR REMODULIN [Concomitant]
     Active Substance: WATER

REACTIONS (2)
  - Gastrointestinal disorder [None]
  - Systemic lupus erythematosus [None]

NARRATIVE: CASE EVENT DATE: 20250729
